FAERS Safety Report 8880930 (Version 4)
Quarter: 2013Q1

REPORT INFORMATION
  Report Type: Spontaneous
  Country: US (occurrence: US)
  Receive Date: 20121101
  Receipt Date: 20130318
  Transmission Date: 20140127
  Serious: Yes (Death)
  Sender: FDA-Public Use
  Company Number: US-BRISTOL-MYERS SQUIBB COMPANY-17088220

PATIENT
  Age: 55 Year
  Sex: Female
  Weight: 115.19 kg

DRUGS (7)
  1. AVAPRO [Suspect]
     Indication: HYPERTENSION
     Route: 048
     Dates: start: 201008
  2. LEVOTHYROXINE [Concomitant]
  3. PRAVASTATIN SODIUM [Concomitant]
  4. METFORMIN [Concomitant]
  5. LEVEMIR [Concomitant]
  6. HYDROCHLOROTHIAZIDE [Concomitant]
  7. AMARYL [Concomitant]

REACTIONS (3)
  - Brain neoplasm malignant [Fatal]
  - Metastatic uterine cancer [Fatal]
  - Breast cancer metastatic [Fatal]
